FAERS Safety Report 22270118 (Version 1)
Quarter: 2023Q2

REPORT INFORMATION
  Report Type: Spontaneous
  Country: US (occurrence: None)
  Receive Date: 20230428
  Receipt Date: 20230428
  Transmission Date: 20230722
  Serious: Yes (Hospitalization)
  Sender: FDA-Public Use
  Company Number: None

PATIENT
  Sex: Female

DRUGS (6)
  1. ARANESP [Suspect]
     Active Substance: DARBEPOETIN ALFA
     Indication: Renal transplant
     Route: 058
     Dates: start: 20220401
  2. CLONAZEPAM [Concomitant]
     Active Substance: CLONAZEPAM
  3. CYCLOSPORINE [Concomitant]
  4. CYCLOSPORINE MODIFIED [Concomitant]
     Active Substance: CYCLOSPORINE
  5. MYCOPHENOLATE MOFETIL [Concomitant]
     Active Substance: MYCOPHENOLATE MOFETIL
  6. SERTRALINE HYDROCHLORIDE [Concomitant]
     Active Substance: SERTRALINE HYDROCHLORIDE

REACTIONS (1)
  - Hospitalisation [None]
